FAERS Safety Report 5264913-3 (Version None)
Quarter: 2007Q1

REPORT INFORMATION
  Report Type: 
  Country: None (occurrence: None)
  Receive Date: 20070314
  Receipt Date: 20070305
  Transmission Date: 20070707
  Serious: Yes (Other)
  Sender: FDA-Public Use
  Company Number: US-AMGEN-US214029

PATIENT
  Age: 83 Year
  Sex: Male
  Weight: 90.3 kg

DRUGS (1)
  1. PROCRIT [Suspect]
     Indication: RENAL FAILURE CHRONIC
     Route: 058
     Dates: start: 20020101

REACTIONS (2)
  - ANAEMIA [None]
  - APLASIA PURE RED CELL [None]
